FAERS Safety Report 15664152 (Version 3)
Quarter: 2018Q4

REPORT INFORMATION
  Report Type: Report from Study
  Country: US (occurrence: US)
  Receive Date: 20181128
  Receipt Date: 20181224
  Transmission Date: 20190205
  Serious: Yes (Other)
  Sender: FDA-Public Use
  Company Number: US-JAZZ-2018-US-006307

PATIENT
  Sex: Female

DRUGS (19)
  1. ZOLPIDEM TARTRATE. [Concomitant]
     Active Substance: ZOLPIDEM TARTRATE
  2. XYREM [Suspect]
     Active Substance: SODIUM OXYBATE
     Dosage: 4.5 G, BID
     Route: 048
     Dates: start: 201406
  3. VITAMIN D3 [Concomitant]
     Active Substance: CHOLECALCIFEROL
  4. TAMOXIFEN [Concomitant]
     Active Substance: TAMOXIFEN
  5. SAM-E [Concomitant]
     Active Substance: ADEMETIONINE
  6. FAMOTIDINE. [Concomitant]
     Active Substance: FAMOTIDINE
  7. OMEPRAZOLE. [Concomitant]
     Active Substance: OMEPRAZOLE
  8. XYREM [Suspect]
     Active Substance: SODIUM OXYBATE
     Dosage: DOSE ADJUSTMENT
     Route: 048
     Dates: start: 200411, end: 201406
  9. DOMPERIDONE [Concomitant]
     Active Substance: DOMPERIDONE
  10. ONDANSETRON [Concomitant]
     Active Substance: ONDANSETRON
  11. ESOMEPRAZOLE MAGNESIUM. [Concomitant]
     Active Substance: ESOMEPRAZOLE MAGNESIUM
  12. ZINC GLUCONATE [Concomitant]
     Active Substance: ZINC GLUCONATE
  13. XYREM [Suspect]
     Active Substance: SODIUM OXYBATE
     Indication: NARCOLEPSY
     Dosage: 2.25 G, BID
     Route: 048
     Dates: start: 200410, end: 200411
  14. PANTOPRAZOLE [Concomitant]
     Active Substance: PANTOPRAZOLE
  15. APRISO [Concomitant]
     Active Substance: MESALAMINE
  16. UCERIS [Concomitant]
     Active Substance: BUDESONIDE
  17. CALCIUM CITRATE [Concomitant]
     Active Substance: CALCIUM CITRATE
  18. CHONDROITIN SULFATE, GLUCOSAMINE SULFATE [Concomitant]
  19. REMICADE [Concomitant]
     Active Substance: INFLIXIMAB

REACTIONS (3)
  - Drug ineffective [Not Recovered/Not Resolved]
  - Hot flush [Not Recovered/Not Resolved]
  - Hysterectomy [Recovering/Resolving]

NARRATIVE: CASE EVENT DATE: 2018
